FAERS Safety Report 13984283 (Version 3)
Quarter: 2017Q4

REPORT INFORMATION
  Report Type: Spontaneous
  Country: BR (occurrence: BR)
  Receive Date: 20170918
  Receipt Date: 20171004
  Transmission Date: 20180321
  Serious: No
  Sender: FDA-Public Use
  Company Number: BR-SA-2017SA169672

PATIENT
  Sex: Female
  Weight: 87 kg

DRUGS (7)
  1. ALLEGRA-D [Suspect]
     Active Substance: FEXOFENADINE\PSEUDOEPHEDRINE
     Indication: PNEUMONIA
     Route: 048
     Dates: start: 20170906, end: 20170910
  2. PREDNISOLONE. [Concomitant]
     Active Substance: PREDNISOLONE
     Indication: RESPIRATORY DISORDER
     Dosage: ONCE A DAY FOR 7 DAYS
     Route: 048
     Dates: start: 20170906
  3. ALLEGRA-D [Suspect]
     Active Substance: FEXOFENADINE\PSEUDOEPHEDRINE
     Indication: RESPIRATORY TRACT INFECTION
     Route: 048
     Dates: start: 20170906, end: 20170910
  4. LEVOFLOXACIN. [Concomitant]
     Active Substance: LEVOFLOXACIN
     Indication: RESPIRATORY DISORDER
     Dosage: ONCE A DAY FOR 7 DAYS
     Route: 048
     Dates: start: 20170903
  5. LOSARTAN. [Concomitant]
     Active Substance: LOSARTAN
     Indication: HYPERTENSION
     Route: 065
     Dates: start: 201704
  6. ACETYLCYSTEINE. [Concomitant]
     Active Substance: ACETYLCYSTEINE
     Indication: RESPIRATORY DISORDER
     Dosage: ONCE A DAY FOR 10 DAYS
     Route: 048
     Dates: start: 20170903
  7. OMNARIS [Concomitant]
     Active Substance: CICLESONIDE
     Indication: RESPIRATORY DISORDER
     Dosage: SPRAY
     Route: 065
     Dates: start: 20170906

REACTIONS (3)
  - Medication residue present [Unknown]
  - Off label use [Unknown]
  - Drug ineffective [Unknown]
